FAERS Safety Report 8078855-1 (Version None)
Quarter: 2012Q1

REPORT INFORMATION
  Report Type: 
  Country: None (occurrence: None)
  Receive Date: 20120124
  Receipt Date: 20120109
  Transmission Date: 20120608
  Serious: Yes (Death)
  Sender: FDA-Public Use
  Company Number: JPI-P-014836

PATIENT
  Age: 52 Year
  Sex: Female
  Weight: 68.4932 kg

DRUGS (9)
  1. XYREM [Suspect]
     Indication: INSOMNIA
     Dosage: SEE IMAGE
     Route: 048
     Dates: start: 20070208, end: 20070221
  2. XYREM [Suspect]
     Indication: INSOMNIA
     Dosage: SEE IMAGE
     Route: 048
     Dates: start: 20070222, end: 20070101
  3. XYREM [Suspect]
     Indication: INSOMNIA
     Dosage: SEE IMAGE
     Route: 048
     Dates: start: 20070101, end: 20070506
  4. OTHER AND UNSPECIFIED DRUGS, MEDICAMENTS, AND BIOLOGICAL SUBSTANCES [Suspect]
     Indication: PRODUCT USED FOR UNKNOWN INDICATION
     Dosage: (UT)
     Dates: end: 20070506
  5. TRIAMTERENE AND HYDROCHLOROTHIAZIDE [Suspect]
     Indication: PRODUCT USED FOR UNKNOWN INDICATION
     Dosage: (MG,37.5/25 MG)
     Dates: end: 20070506
  6. LORAZEPAM [Suspect]
     Indication: PRODUCT USED FOR UNKNOWN INDICATION
     Dosage: (0.5 TO 1 GM THREE TIMES DAILY AS NEEDED)
     Dates: end: 20070506
  7. TRAMADOL HCL [Suspect]
     Indication: PRODUCT USED FOR UNKNOWN INDICATION
     Dosage: (50 MG)
     Dates: end: 20070506
  8. MIRTAZAPINE [Suspect]
     Indication: PRODUCT USED FOR UNKNOWN INDICATION
     Dosage: (7.5 MG)
     Dates: end: 20070506
  9. LEVOTHYROXINE SODIUM [Suspect]
     Indication: PRODUCT USED FOR UNKNOWN INDICATION
     Dosage: (12.5 MCG)
     Dates: end: 20070506

REACTIONS (2)
  - COMPLETED SUICIDE [None]
  - INTENTIONAL OVERDOSE [None]
